FAERS Safety Report 24045044 (Version 2)
Quarter: 2024Q3

REPORT INFORMATION
  Report Type: Spontaneous
  Country: JP (occurrence: JP)
  Receive Date: 20240703
  Receipt Date: 20240711
  Transmission Date: 20241017
  Serious: Yes (Other)
  Sender: TEVA
  Company Number: JP-TEVA-VS-3215487

PATIENT
  Age: 84 Year
  Sex: Male

DRUGS (7)
  1. ESTAZOLAM [Suspect]
     Active Substance: ESTAZOLAM
     Indication: Insomnia
     Dosage: DOSAGE IS UNKNOWN, 1MG. TABLETS
     Route: 048
     Dates: start: 1992
  2. ESTAZOLAM [Suspect]
     Active Substance: ESTAZOLAM
     Indication: Insomnia
     Dosage: DOSAGE IS UNKNOWN, 1MG. TABLETS
     Route: 048
     Dates: start: 2019
  3. CLOXAZOLAM [Concomitant]
     Active Substance: CLOXAZOLAM
     Indication: Insomnia
     Dosage: DOSAGE IS UNKNOWN
     Route: 048
     Dates: start: 2019
  4. CLOXAZOLAM [Concomitant]
     Active Substance: CLOXAZOLAM
     Indication: Insomnia
     Dosage: DOSAGE IS UNKNOWN
     Route: 048
  5. CLOXAZOLAM [Concomitant]
     Active Substance: CLOXAZOLAM
     Indication: Insomnia
     Dosage: DOSAGE IS UNKNOWN
     Route: 048
     Dates: start: 1992
  6. MIRTAZAPINE [Concomitant]
     Active Substance: MIRTAZAPINE
     Dosage: DOSAGE IS UNKNOWN
     Route: 048
  7. LUNESTA [Concomitant]
     Active Substance: ESZOPICLONE
     Dosage: DOSAGE IS UNKNOWN
     Route: 048

REACTIONS (7)
  - Drug dependence [Not Recovered/Not Resolved]
  - Renal impairment [Unknown]
  - Anxiety [Not Recovered/Not Resolved]
  - Depression [Unknown]
  - Cognitive disorder [Unknown]
  - Persecutory delusion [Unknown]
  - Sleep apnoea syndrome [Unknown]

NARRATIVE: CASE EVENT DATE: 19980101
